FAERS Safety Report 6179998-X (Version None)
Quarter: 2009Q2

REPORT INFORMATION
  Report Type: 
  Country: None (occurrence: None)
  Receive Date: 20090501
  Receipt Date: 20090417
  Transmission Date: 20091009
  Serious: Yes (Other)
  Sender: FDA-Public Use
  Company Number: ADE# 09-098DPR

PATIENT
  Age: 62 Year
  Sex: Female

DRUGS (3)
  1. DIGOXIN [Suspect]
     Indication: ATRIOVENTRICULAR BLOCK
     Dosage: ONCE A DAY; 11 YEARS AGO
     Dates: end: 20090403
  2. MICARDIS [Concomitant]
  3. LANOXIN [Concomitant]

REACTIONS (4)
  - FEELING ABNORMAL [None]
  - HYPOTENSION [None]
  - NAUSEA [None]
  - VOMITING [None]
